FAERS Safety Report 7579084-8 (Version None)
Quarter: 2011Q2

REPORT INFORMATION
  Report Type: 
  Country: None (occurrence: None)
  Receive Date: 20110628
  Receipt Date: 20110617
  Transmission Date: 20111010
  Serious: Yes (Other)
  Sender: FDA-Public Use
  Company Number: DK-NOVOPROD-325582

PATIENT
  Age: 60 Year
  Sex: Female
  Weight: 74 kg

DRUGS (18)
  1. LEVOTHYROXINE SODIUM [Concomitant]
  2. FUROSEMIDE [Concomitant]
  3. D VITAMIINI [Concomitant]
  4. CALCIUM CARBONATE [Concomitant]
  5. POTASSIUM CHLORIDE [Concomitant]
  6. LEVEMIR [Suspect]
     Dosage: 4 IU, QD
     Route: 058
  7. LEVEMIR [Suspect]
     Dosage: 5 IU, QD INJECTION IN THE THIGH ABOUT 18.00 EVERY DAY
     Route: 058
     Dates: start: 20110307
  8. SPIRONOLACTONE [Concomitant]
  9. WARFARIN SODIUM [Concomitant]
  10. DIGOXIN [Concomitant]
  11. GABAPENTIN [Concomitant]
  12. ACETAMINOPHEN [Concomitant]
  13. EZETIMIBE [Concomitant]
  14. FERROUS SULFATE TAB [Concomitant]
  15. LEVEMIR [Suspect]
     Indication: TYPE 2 DIABETES MELLITUS
     Dosage: 6 IU, QD
     Route: 058
  16. LOSARTAN POTASSIUM [Concomitant]
  17. PANTOPRAZOLE [Concomitant]
  18. ATORVASTATIN CALCIUM [Concomitant]

REACTIONS (2)
  - HYPOGLYCAEMIA [None]
  - TRANSIENT ISCHAEMIC ATTACK [None]
